FAERS Safety Report 5288831-X (Version None)
Quarter: 2007Q2

REPORT INFORMATION
  Report Type: 
  Country: None (occurrence: None)
  Receive Date: 20070405
  Receipt Date: 20070326
  Transmission Date: 20071010
  Serious: Yes (Other)
  Sender: FDA-Public Use
  Company Number: US-MERCK-0704USA00568

PATIENT
  Age: 65 Year
  Sex: Female

DRUGS (8)
  1. ZOCOR [Suspect]
     Route: 048
  2. ALEVE [Concomitant]
     Indication: MYALGIA
     Route: 065
     Dates: start: 20060901
  3. ALEVE [Concomitant]
     Route: 065
     Dates: start: 20060901, end: 20070301
  4. ALEVE [Concomitant]
     Route: 065
     Dates: start: 20070301, end: 20070301
  5. ALEVE [Concomitant]
     Indication: MUSCLE STRAIN
     Route: 065
     Dates: start: 20060901
  6. ALEVE [Concomitant]
     Route: 065
     Dates: start: 20060901, end: 20070301
  7. ALEVE [Concomitant]
     Route: 065
     Dates: start: 20070301, end: 20070301
  8. AVAPRO [Suspect]
     Route: 065

REACTIONS (4)
  - CHEST DISCOMFORT [None]
  - HEART RATE INCREASED [None]
  - MYALGIA [None]
  - PAIN IN EXTREMITY [None]
